FAERS Safety Report 7039762-6 (Version None)
Quarter: 2010Q4

REPORT INFORMATION
  Report Type: 
  Country: None (occurrence: None)
  Receive Date: 20101012
  Receipt Date: 20100118
  Transmission Date: 20110411
  Serious: No
  Sender: FDA-Public Use
  Company Number: US-MYLANLABS-2010S1000969

PATIENT
  Age: 42 Year
  Sex: Female
  Weight: 61.24 kg

DRUGS (1)
  1. PINDOLOL [Suspect]
     Indication: MITRAL VALVE PROLAPSE
     Route: 048
     Dates: start: 20100116, end: 20100116

REACTIONS (3)
  - ANXIETY [None]
  - HEART RATE INCREASED [None]
  - INSOMNIA [None]
